FAERS Safety Report 23257078 (Version 1)
Quarter: 2023Q4

REPORT INFORMATION
  Report Type: Spontaneous
  Country: CA (occurrence: CA)
  Receive Date: 20231204
  Receipt Date: 20231204
  Transmission Date: 20240109
  Serious: Yes (Hospitalization, Other)
  Sender: FDA-Public Use
  Company Number: CA-MICRO LABS LIMITED-ML2023-06917

PATIENT
  Age: 81 Year
  Sex: Male

DRUGS (2)
  1. RANOLAZINE [Suspect]
     Active Substance: RANOLAZINE
     Indication: Product used for unknown indication
     Dosage: 500 MG- 1 TABLET BY MOUTH TWICE DAILY
     Route: 048
     Dates: start: 20231121, end: 20231122
  2. UNSPECIFIED INGREDIENT [Concomitant]
     Active Substance: UNSPECIFIED INGREDIENT
     Indication: Cystitis
     Route: 042
     Dates: start: 20231122

REACTIONS (5)
  - Cystitis [Unknown]
  - Asthenia [Unknown]
  - Decreased appetite [Unknown]
  - Syncope [Recovered/Resolved]
  - Dysuria [Unknown]

NARRATIVE: CASE EVENT DATE: 20231121
